FAERS Safety Report 17556069 (Version 2)
Quarter: 2022Q3

REPORT INFORMATION
  Report Type: Spontaneous
  Country: GB (occurrence: GB)
  Receive Date: 20200318
  Receipt Date: 20220914
  Transmission Date: 20221027
  Serious: Yes (Other)
  Sender: FDA-Public Use
  Company Number: GB-SUN PHARMACEUTICAL INDUSTRIES LTD-2020R1-240479

PATIENT
  Age: 25 Year
  Sex: Male

DRUGS (2)
  1. LIOTHYRONINE [Suspect]
     Active Substance: LIOTHYRONINE
     Indication: Muscle building therapy
     Dosage: 25 MICROGRAM, DAILY
     Route: 065
  2. TESTOSTERONE [Suspect]
     Active Substance: TESTOSTERONE
     Indication: Muscle building therapy
     Dosage: 375 MILLIGRAM, WEEKLY
     Route: 065

REACTIONS (1)
  - Tachycardia [Recovered/Resolved]
